FAERS Safety Report 17517478 (Version 1)
Quarter: 2020Q1

REPORT INFORMATION
  Report Type: Spontaneous
  Country: US (occurrence: US)
  Receive Date: 20200309
  Receipt Date: 20200309
  Transmission Date: 20200409
  Serious: No
  Sender: FDA-Public Use
  Company Number: US-SA-2020SA061345

PATIENT
  Sex: Female

DRUGS (2)
  1. PLAVIX [Suspect]
     Active Substance: CLOPIDOGREL BISULFATE
     Route: 065
  2. CORTISONE [Concomitant]
     Active Substance: CORTISONE
     Route: 065

REACTIONS (3)
  - Pruritus [Unknown]
  - Burning sensation [Unknown]
  - Rash [Unknown]
